FAERS Safety Report 9337041 (Version 2)
Quarter: 2013Q2

REPORT INFORMATION
  Report Type: Report from Study
  Country: US (occurrence: US)
  Receive Date: 20130607
  Receipt Date: 20130613
  Transmission Date: 20140414
  Serious: Yes (Hospitalization)
  Sender: FDA-Public Use
  Company Number: US-ROCHE-1035757

PATIENT
  Age: 69 Year
  Sex: Female
  Weight: 69.9 kg

DRUGS (9)
  1. TRASTUZUMAB EMTANSINE [Suspect]
     Indication: BREAST CANCER METASTATIC
     Route: 042
     Dates: start: 20111209, end: 20111230
  2. PACLITAXEL [Suspect]
     Indication: BREAST CANCER METASTATIC
     Route: 042
     Dates: start: 20111208, end: 20120106
  3. GENERLAC [Concomitant]
     Indication: CONSTIPATION
     Route: 065
     Dates: start: 20111230
  4. ALEVE [Concomitant]
     Indication: PAIN
     Route: 048
     Dates: start: 20120118, end: 20120330
  5. MELATONIN [Concomitant]
     Indication: SLEEP DISORDER
     Route: 065
     Dates: start: 20120110
  6. ASTELIN [Concomitant]
     Route: 065
     Dates: start: 20070815
  7. BENADRYL (UNITED STATES) [Concomitant]
     Indication: HYPERSENSITIVITY
     Route: 048
     Dates: start: 20110302
  8. TYLENOL [Concomitant]
     Indication: PAIN
     Route: 048
     Dates: start: 20111230
  9. PRAVACHOL [Concomitant]
     Indication: BLOOD CHOLESTEROL INCREASED
     Route: 065
     Dates: start: 20101126

REACTIONS (1)
  - Febrile neutropenia [Recovered/Resolved]
